FAERS Safety Report 5090149-5 (Version None)
Quarter: 2006Q3

REPORT INFORMATION
  Report Type: 
  Country: None (occurrence: None)
  Receive Date: 20060828
  Receipt Date: 20060817
  Transmission Date: 20061208
  Serious: Yes (Disabling)
  Sender: FDA-Public Use
  Company Number: PL-ROCHE-459900

PATIENT
  Age: 62 Year
  Sex: Male
  Weight: 58 kg

DRUGS (13)
  1. GANCICLOVIR SODIUM [Suspect]
     Indication: GLIOMA
     Route: 042
     Dates: start: 20060218, end: 20060303
  2. CEREPRO [Suspect]
     Indication: GLIOMA
     Route: 065
     Dates: start: 20060213, end: 20060213
  3. DEXAMETHASONE [Concomitant]
     Indication: BRAIN OEDEMA
     Dates: start: 20060207
  4. MANNITOL [Concomitant]
     Indication: BRAIN OEDEMA
     Dates: start: 20060207, end: 20060303
  5. POTASSIUM CHLORIDE [Concomitant]
     Dates: start: 20060207
  6. FAMOTIDINE [Concomitant]
     Dates: start: 20060207
  7. CARBAMAZEPINE [Concomitant]
     Indication: EPILEPSY
     Dates: start: 20060207
  8. LORAZEPAM [Concomitant]
     Dates: start: 20060212, end: 20060221
  9. ENOXAPARIN SODIUM [Concomitant]
     Dates: start: 20060212, end: 20060212
  10. MIDAZOLAM [Concomitant]
     Dates: start: 20060213, end: 20060213
  11. CEFTRIAXONE [Concomitant]
     Dates: start: 20060213
  12. METAMIZOLE [Concomitant]
     Dates: start: 20060213
  13. RANITIDINE [Concomitant]
     Dates: start: 20060213

REACTIONS (7)
  - AGNOSIA [None]
  - BALANCE DISORDER [None]
  - EPILEPSY [None]
  - HYPONATRAEMIA [None]
  - NERVOUS SYSTEM DISORDER [None]
  - PARESIS [None]
  - TRAUMATIC BRAIN INJURY [None]
